FAERS Safety Report 14372217 (Version 1)
Quarter: 2018Q1

REPORT INFORMATION
  Report Type: Spontaneous
  Country: US (occurrence: US)
  Receive Date: 20180110
  Receipt Date: 20180110
  Transmission Date: 20180509
  Serious: Yes (Other)
  Sender: FDA-Public Use
  Company Number: US-PFIZER INC-2018007871

PATIENT
  Age: 7 Month
  Sex: Female
  Weight: 7.9 kg

DRUGS (2)
  1. THEOPHYLLINE [Suspect]
     Active Substance: THEOPHYLLINE ANHYDROUS
     Dosage: UNK
  2. SOMOPHYLLIN [Suspect]
     Active Substance: AMINOPHYLLINE
     Indication: UPPER RESPIRATORY TRACT INFECTION
     Dosage: 3 ML, 4X/DAY (DOSE ADMINISTERED BY MISTAKE INSTEAD OF PRESCRIBED DOSE 0.3ML EVERY SIX HOURS)
     Route: 048

REACTIONS (3)
  - Accidental overdose [Recovering/Resolving]
  - Cardiac arrest [Recovering/Resolving]
  - Toxicity to various agents [Recovering/Resolving]
